FAERS Safety Report 7197478-X (Version None)
Quarter: 2010Q4

REPORT INFORMATION
  Report Type: 
  Country: None (occurrence: None)
  Receive Date: 20101213
  Receipt Date: 20101202
  Transmission Date: 20110411
  Serious: Yes (Death)
  Sender: FDA-Public Use
  Company Number: 2010CP000319

PATIENT

DRUGS (1)
  1. PERFALGAN (PARACETAMOL) [Suspect]

REACTIONS (1)
  - DEATH [None]
